FAERS Safety Report 15389745 (Version 2)
Quarter: 2019Q1

REPORT INFORMATION
  Report Type: Spontaneous
  Country: DE (occurrence: DE)
  Receive Date: 20180917
  Receipt Date: 20190119
  Transmission Date: 20190417
  Serious: Yes (Death, Life-Threatening, Hospitalization, Other)
  Sender: FDA-Public Use
  Company Number: DE-AUROBINDO-AUR-APL-2018-032427

PATIENT
  Age: 73 Year
  Sex: Female
  Weight: 106 kg

DRUGS (50)
  1. FOLINIC ACID [Suspect]
     Active Substance: LEUCOVORIN
     Dosage: DAILY DOSE: 800 MG MILLGRAM(S) EVERY 2 WEEKS
     Route: 042
     Dates: start: 20140326, end: 20140327
  2. OXALIPLATIN. [Suspect]
     Active Substance: OXALIPLATIN
     Dosage: 170 MILLIGRAM, UNK
     Route: 042
     Dates: start: 20131029, end: 20131029
  3. OXALIPLATIN. [Suspect]
     Active Substance: OXALIPLATIN
     Dosage: 140 MILLIGRAM, UNK
     Route: 042
     Dates: start: 20131210, end: 20131210
  4. 5-FU                               /00098801/ [Suspect]
     Active Substance: FLUOROURACIL
     Dosage: 720 MG BOLUS 1800 MG DRIP
     Route: 042
     Dates: start: 20140701, end: 20140702
  5. BEVACIZUMAB. [Suspect]
     Active Substance: BEVACIZUMAB
     Dosage: DAILY DOSE: 420 MG MILLGRAM(S) EVERY 2 WEEKS
     Route: 042
     Dates: start: 20131210, end: 20131210
  6. RAMIPRIL. [Concomitant]
     Active Substance: RAMIPRIL
     Indication: HYPERTENSION
     Dosage: DAILY DOSE: 2.5 MG MILLGRAM(S) EVERY DAYS
     Route: 048
  7. URO-TABLINEN [Concomitant]
     Indication: URINARY TRACT INFECTION
     Dosage: DAILY DOSE: 50 MG MILLGRAM(S) EVERY DAYS
     Route: 048
  8. FOLINIC ACID [Suspect]
     Active Substance: LEUCOVORIN
     Indication: COLORECTAL CANCER METASTATIC
     Dosage: 800 MILLIGRAM, UNK
     Route: 042
     Dates: start: 20131008, end: 20131009
  9. FOLINIC ACID [Suspect]
     Active Substance: LEUCOVORIN
     Dosage: 640 MILLIGRAM, UNK
     Route: 042
     Dates: start: 20131210, end: 20131211
  10. FOLINIC ACID [Suspect]
     Active Substance: LEUCOVORIN
     Dosage: 720 MILLIGRAM, UNK
     Route: 042
     Dates: start: 20140603, end: 20140604
  11. 5-FU                               /00098801/ [Suspect]
     Active Substance: FLUOROURACIL
     Dosage: 1280 MG BOLUS 1900 MG DRIP
     Route: 042
     Dates: start: 20131119, end: 20131120
  12. BEVACIZUMAB. [Suspect]
     Active Substance: BEVACIZUMAB
     Indication: COLORECTAL CANCER METASTATIC
     Dosage: DAILY DOSE: 530 MG MILLGRAM(S) EVERY 2 WEEKS
     Route: 042
     Dates: start: 20131008, end: 20131008
  13. NOVAMINSULFON [Concomitant]
     Active Substance: METAMIZOLE
     Indication: PAIN
     Dosage: 90 GTT, DAILY, UNIT DOSE: 30 [DRP] DAILY DOSE: 90 GTT DROP(S) EVERY DAYS
     Route: 048
  14. GLANDOMED [Concomitant]
     Indication: MUCOSAL INFLAMMATION
     Dosage: UNK
     Route: 065
     Dates: start: 20131029
  15. L-THYROXIN                         /00068001/ [Concomitant]
     Active Substance: LEVOTHYROXINE
     Indication: HYPOTHYROIDISM
     Dosage: DAILY DOSE: 50 ?G MICROGRAM(S) EVERY DAYS
     Route: 048
  16. FOLINIC ACID [Suspect]
     Active Substance: LEUCOVORIN
     Dosage: 720 MILLIGRAM, UNK
     Route: 042
     Dates: start: 20140715, end: 20140716
  17. FOLINIC ACID [Suspect]
     Active Substance: LEUCOVORIN
     Dosage: 720 MILLIGRAM, UNK
     Route: 042
     Dates: start: 20140930, end: 20141001
  18. OXALIPLATIN. [Suspect]
     Active Substance: OXALIPLATIN
     Indication: COLORECTAL CANCER METASTATIC
     Dosage: 170 MILLIGRAM, UNK
     Route: 042
     Dates: start: 20131008, end: 20131008
  19. OXALIPLATIN. [Suspect]
     Active Substance: OXALIPLATIN
     Dosage: 140 MILLIGRAM, UNK
     Route: 042
     Dates: start: 20131119, end: 20131119
  20. OXALIPLATIN. [Suspect]
     Active Substance: OXALIPLATIN
     Dosage: 140 MILLIGRAM, UNK
     Route: 042
     Dates: start: 20140211, end: 20140211
  21. OXALIPLATIN. [Suspect]
     Active Substance: OXALIPLATIN
     Dosage: 140 MILLIGRAM, UNK
     Route: 042
     Dates: start: 20140326, end: 20140327
  22. 5-FU                               /00098801/ [Suspect]
     Active Substance: FLUOROURACIL
     Indication: COLORECTAL CANCER METASTATIC
     Dosage: 1600 MG BOLUS 2400 MG DRIP
     Route: 042
     Dates: start: 20131008, end: 20131009
  23. 5-FU                               /00098801/ [Suspect]
     Active Substance: FLUOROURACIL
     Dosage: 1280 MG BOLUS 1900 MG DRIP
     Route: 042
     Dates: start: 20140211, end: 20140212
  24. LONQUEX [Concomitant]
     Active Substance: LIPEGFILGRASTIM
     Indication: PROPHYLAXIS
     Dosage: UNK
     Route: 058
     Dates: start: 20140716, end: 20140716
  25. SODIUM CHLORIDE. [Concomitant]
     Active Substance: SODIUM CHLORIDE
     Indication: BLOOD CREATININE INCREASED
     Dosage: UNK
     Route: 042
     Dates: start: 20141001, end: 20141001
  26. 5-FU                               /00098801/ [Suspect]
     Active Substance: FLUOROURACIL
     Dosage: 720 MG BOLUS 1800 MG DRIP
     Route: 042
     Dates: start: 20140603, end: 20140604
  27. 5-FU                               /00098801/ [Suspect]
     Active Substance: FLUOROURACIL
     Dosage: 720 MG BOLUS 1800 MG DRIP
     Route: 042
     Dates: start: 20140916, end: 20140917
  28. FOLINIC ACID [Suspect]
     Active Substance: LEUCOVORIN
     Dosage: 800 MILLIGRAM, UNK
     Route: 042
     Dates: start: 20140415, end: 20140416
  29. 5-FU                               /00098801/ [Suspect]
     Active Substance: FLUOROURACIL
     Dosage: 1280 MG BOLUS  1900 MG DRIP
     Route: 042
     Dates: start: 20140121, end: 20140122
  30. 5-FU                               /00098801/ [Suspect]
     Active Substance: FLUOROURACIL
     Dosage: 1600 MG BOLUS  2400 MG DRIP
     Route: 042
     Dates: start: 20140326, end: 20140327
  31. 5-FU                               /00098801/ [Suspect]
     Active Substance: FLUOROURACIL
     Dosage: 720 MG BOLUS  1800 MG DRIP
     Route: 042
     Dates: start: 20140715, end: 20140716
  32. FOLINIC ACID [Suspect]
     Active Substance: LEUCOVORIN
     Dosage: 800 MILLIGRAM, UNK
     Route: 042
     Dates: start: 20131029, end: 20131030
  33. FOLINIC ACID [Suspect]
     Active Substance: LEUCOVORIN
     Dosage: 640 MILLIGRAM, UNK
     Route: 042
     Dates: start: 20140121, end: 20140122
  34. FOLINIC ACID [Suspect]
     Active Substance: LEUCOVORIN
     Dosage: 640 MILLIGRAM, UNK
     Route: 042
     Dates: start: 20140211, end: 20140212
  35. FOLINIC ACID [Suspect]
     Active Substance: LEUCOVORIN
     Dosage: 720 MILLIGRAM, UNK
     Route: 042
     Dates: start: 20140617, end: 20140618
  36. FOLINIC ACID [Suspect]
     Active Substance: LEUCOVORIN
     Dosage: 720 MILLIGRAM, UNK
     Route: 042
     Dates: start: 20140822, end: 20140823
  37. 5-FU                               /00098801/ [Suspect]
     Active Substance: FLUOROURACIL
     Dosage: 1280 MG BOLUS 1900 MG DRIP
     Route: 042
     Dates: start: 20131210, end: 20131211
  38. 5-FU                               /00098801/ [Suspect]
     Active Substance: FLUOROURACIL
     Dosage: 1600 MG BOLUS 2400 MG DRIP
     Route: 042
     Dates: start: 20140415, end: 20140415
  39. PANTOZOL [Concomitant]
     Active Substance: PANTOPRAZOLE SODIUM
     Indication: PROPHYLAXIS
     Dosage: DAILY DOSE: 40 MG MILLGRAM(S) EVERY DAYS
     Route: 048
  40. OPIUM TINCTURE [Concomitant]
     Active Substance: MORPHINE
     Indication: PRODUCT USED FOR UNKNOWN INDICATION
     Dosage: UNK UNK, DAILY
     Route: 048
     Dates: start: 20140227
  41. FOLINIC ACID [Suspect]
     Active Substance: LEUCOVORIN
     Dosage: 640 MILLIGRAM, UNK
     Route: 042
     Dates: start: 20131119, end: 20131120
  42. FOLINIC ACID [Suspect]
     Active Substance: LEUCOVORIN
     Dosage: 720 MILLIGRAM, UNK
     Route: 042
     Dates: start: 20140701, end: 20140702
  43. FOLINIC ACID [Suspect]
     Active Substance: LEUCOVORIN
     Dosage: 720 MILLIGRAM , UNK
     Route: 042
     Dates: start: 20140916, end: 20140917
  44. OXALIPLATIN. [Suspect]
     Active Substance: OXALIPLATIN
     Dosage: 140 MILLIGRAM, UNK
     Route: 042
     Dates: start: 20140121, end: 20140121
  45. 5-FU                               /00098801/ [Suspect]
     Active Substance: FLUOROURACIL
     Dosage: 1600 MG BOLUS 2400 MG DRIP
     Route: 042
     Dates: start: 20131029, end: 20131030
  46. 5-FU                               /00098801/ [Suspect]
     Active Substance: FLUOROURACIL
     Dosage: 720 MG BOLUS  1800 MG DRIP
     Route: 042
     Dates: start: 20140930, end: 20141001
  47. OXALIPLATIN. [Suspect]
     Active Substance: OXALIPLATIN
     Dosage: DAILY DOSE: 140 MG MILLGRAM(S) EVERY 2 WEEKS
     Route: 042
     Dates: start: 20140121, end: 20140121
  48. 5-FU                               /00098801/ [Suspect]
     Active Substance: FLUOROURACIL
     Dosage: 720 MG BOLUS  1800 MG DRIP
     Route: 042
     Dates: start: 20140617, end: 20140618
  49. 5-FU                               /00098801/ [Suspect]
     Active Substance: FLUOROURACIL
     Dosage: 720 MG BOLUS 1800 MG DRIP
     Route: 042
     Dates: start: 20140822, end: 20140823
  50. NEULASTA [Concomitant]
     Active Substance: PEGFILGRASTIM
     Indication: PROPHYLAXIS
     Dosage: DAILY DOSE: 6 MG MILLGRAM(S) EVERY DAYS
     Route: 058
     Dates: start: 20140605, end: 20140703

REACTIONS (6)
  - Death [Fatal]
  - Neutropenia [Recovered/Resolved]
  - Anaemia [Recovered/Resolved]
  - Diarrhoea [Recovered/Resolved]
  - Febrile neutropenia [Recovered/Resolved]
  - Pulmonary embolism [Recovered/Resolved]

NARRATIVE: CASE EVENT DATE: 20131030
